FAERS Safety Report 9713884 (Version 1)
Quarter: 2013Q4

REPORT INFORMATION
  Report Type: Spontaneous
  Country: ES (occurrence: ES)
  Receive Date: 20131126
  Receipt Date: 20131126
  Transmission Date: 20140711
  Serious: Yes (Other)
  Sender: FDA-Public Use
  Company Number: ES-GLAXOSMITHKLINE-B0943030A

PATIENT
  Age: 51 Year
  Sex: Male

DRUGS (2)
  1. ACYCLOVIR [Suspect]
     Indication: EPSTEIN-BARR VIRUS INFECTION
     Dosage: 10MGK THREE TIMES PER DAY
     Route: 042
  2. AMOXICILLIN/CLAVULANIC ACID [Concomitant]

REACTIONS (2)
  - Renal failure [Recovering/Resolving]
  - Dysaesthesia [Unknown]
